FAERS Safety Report 5733351-9 (Version None)
Quarter: 2008Q2

REPORT INFORMATION
  Report Type: 
  Country: None (occurrence: None)
  Receive Date: 20080509
  Receipt Date: 20080502
  Transmission Date: 20081010
  Serious: Yes (Other)
  Sender: FDA-Public Use
  Company Number: US-BAYER-200821849NA

PATIENT
  Age: 35 Year
  Sex: Female

DRUGS (1)
  1. MIRENA [Suspect]
     Indication: CONTRACEPTION
     Route: 015
     Dates: start: 20050113

REACTIONS (7)
  - ACNE [None]
  - ANXIETY [None]
  - DEPRESSION [None]
  - DIZZINESS [None]
  - LIBIDO DECREASED [None]
  - MOOD ALTERED [None]
  - WEIGHT INCREASED [None]
